FAERS Safety Report 7353123-1 (Version None)
Quarter: 2011Q1

REPORT INFORMATION
  Report Type: 
  Country: None (occurrence: None)
  Receive Date: 20110315
  Receipt Date: 20110301
  Transmission Date: 20110831
  Serious: No
  Sender: FDA-Public Use
  Company Number: JP-ELI_LILLY_AND_COMPANY-JP201003005057

PATIENT
  Sex: Male
  Weight: 64 kg

DRUGS (6)
  1. MONILAC [Concomitant]
  2. GEMZAR [Suspect]
     Indication: BILE DUCT CANCER
     Dosage: 1.6 G, UNK
     Route: 042
  3. LAC-B [Concomitant]
  4. GASTROZEPIN [Concomitant]
  5. METHYCOBAL [Concomitant]
  6. JU-KAMA [Concomitant]

REACTIONS (1)
  - PNEUMONITIS [None]
